FAERS Safety Report 9012068 (Version 3)
Quarter: 2013Q2

REPORT INFORMATION
  Report Type: Spontaneous
  Country: US (occurrence: US)
  Receive Date: 20130114
  Receipt Date: 20130510
  Transmission Date: 20140414
  Serious: Yes (Hospitalization)
  Sender: FDA-Public Use
  Company Number: US-BAYER-2013-003337

PATIENT
  Age: 21 Year
  Sex: Female
  Weight: 88.44 kg

DRUGS (4)
  1. YASMIN [Suspect]
     Indication: ACNE
     Dosage: UNK
     Dates: start: 20040330, end: 20050801
  2. YASMIN [Suspect]
     Indication: CONTRACEPTION
  3. ANTIBIOTICS [Concomitant]
     Dosage: UNK
  4. NSAID^S [Concomitant]
     Dosage: UNK

REACTIONS (5)
  - Pulmonary embolism [None]
  - Injury [None]
  - Pain [None]
  - Deep vein thrombosis [None]
  - Pain [None]
